FAERS Safety Report 9187637 (Version 1)
Quarter: 2013Q1

REPORT INFORMATION
  Report Type: Spontaneous
  Country: BD (occurrence: BD)
  Receive Date: 20130325
  Receipt Date: 20130325
  Transmission Date: 20140127
  Serious: Yes (Other)
  Sender: FDA-Public Use
  Company Number: PHHY2013BD027253

PATIENT
  Age: 76 Year
  Sex: Female

DRUGS (1)
  1. ACLASTA [Suspect]
     Dosage: ONCE YEARLY
     Route: 042
     Dates: start: 20130313

REACTIONS (5)
  - Respiratory distress [Unknown]
  - Diabetes mellitus [Unknown]
  - Asthma [Unknown]
  - Asthenia [Unknown]
  - Hypertension [Unknown]
